FAERS Safety Report 18251551 (Version 2)
Quarter: 2021Q3

REPORT INFORMATION
  Report Type: Spontaneous
  Country: CA (occurrence: CA)
  Receive Date: 20200910
  Receipt Date: 20210731
  Transmission Date: 20211014
  Serious: Yes (Life-Threatening, Hospitalization, Other)
  Sender: FDA-Public Use
  Company Number: CA-ACCORD-200040

PATIENT
  Age: 77 Year
  Sex: Female
  Weight: 54 kg

DRUGS (20)
  1. FOLINIC ACID [Suspect]
     Active Substance: LEUCOVORIN
     Indication: PRODUCT USED FOR UNKNOWN INDICATION
     Dosage: LIQUID INTRAVENOUS
  2. FRAGMIN [Concomitant]
     Active Substance: DALTEPARIN SODIUM
     Dosage: SOLUTION INTRAVENOUS
  3. MACROGOL 3350 [Concomitant]
     Active Substance: POLYETHYLENE GLYCOL 3350
     Dosage: POWDER FOR SOLUTION ORAL
  4. POTASSIUM CHLORIDE. [Concomitant]
     Active Substance: POTASSIUM CHLORIDE
  5. PANCRELIPASE. [Concomitant]
     Active Substance: PANCRELIPASE
  6. ONDANSETRON [Concomitant]
     Active Substance: ONDANSETRON
  7. ROSUVASTATIN/ROSUVASTATIN CALCIUM [Concomitant]
     Active Substance: ROSUVASTATIN CALCIUM
     Route: 058
  8. SENOKOT [Concomitant]
     Active Substance: SENNOSIDES
  9. CRESTOR [Concomitant]
     Active Substance: ROSUVASTATIN CALCIUM
  10. NEUPOGEN [Concomitant]
     Active Substance: FILGRASTIM
     Dosage: SOLUTION INTRAVENOUS
  11. FLUOROURACIL. [Suspect]
     Active Substance: FLUOROURACIL
     Indication: PRODUCT USED FOR UNKNOWN INDICATION
     Dosage: SOLUTION INTRAVENOUS
  12. OXALIPLATIN. [Suspect]
     Active Substance: OXALIPLATIN
     Indication: PANCREATIC CARCINOMA
     Route: 042
  13. PARACETAMOL [Concomitant]
     Active Substance: ACETAMINOPHEN
  14. BISACODYL. [Concomitant]
     Active Substance: BISACODYL
  15. IRINOTECAN [Suspect]
     Active Substance: IRINOTECAN
     Indication: PRODUCT USED FOR UNKNOWN INDICATION
     Dosage: SOLUTION INTRAVENOUS
  16. FILGRASTIM [Concomitant]
     Active Substance: FILGRASTIM
     Dosage: SOLUTION INTRAVENOUS
  17. LEVOTHYROXINE. [Concomitant]
     Active Substance: LEVOTHYROXINE
  18. MELATONIN [Concomitant]
     Active Substance: MELATONIN
  19. MACROGOL [Concomitant]
     Active Substance: POLYETHYLENE GLYCOLS
     Route: 048
  20. VANCOMYCIN [Concomitant]
     Active Substance: VANCOMYCIN

REACTIONS (2)
  - Febrile neutropenia [Recovering/Resolving]
  - Off label use [Unknown]
